FAERS Safety Report 9341867 (Version 2)
Quarter: 2013Q2

REPORT INFORMATION
  Report Type: Spontaneous
  Country: AU (occurrence: None)
  Receive Date: 20130606
  Receipt Date: 20130613
  Transmission Date: 20140414
  Serious: Yes (Hospitalization, Congenital Anomaly, Other)
  Sender: FDA-Public Use
  Company Number: VAL_02555_2013

PATIENT
  Sex: 0

DRUGS (1)
  1. METOPROLOL [Suspect]
     Indication: PRODUCT USED FOR UNKNOWN INDICATION
     Dosage: (]MATERNAL DOSE; UNK]  OCCURED AT 3RD  TRI- 26/7  WKS OF PREGNANCY TRANSPLACENTAL) UNTIL NOT CONT.?
     Route: 064

REACTIONS (10)
  - Premature baby [None]
  - Oligohydramnios [None]
  - Renal failure acute [None]
  - Pulmonary hypoplasia [None]
  - Hypocalciuria [None]
  - Maternal drugs affecting foetus [None]
  - Congenital anomaly [None]
  - Caesarean section [None]
  - Hypocalvaria [None]
  - Congenital cystic kidney disease [None]
